FAERS Safety Report 24390458 (Version 2)
Quarter: 2024Q4

REPORT INFORMATION
  Report Type: Spontaneous
  Country: IT (occurrence: IT)
  Receive Date: 20241003
  Receipt Date: 20241018
  Transmission Date: 20250115
  Serious: Yes (Hospitalization)
  Sender: BOEHRINGER INGELHEIM
  Company Number: IT-BoehringerIngelheim-2024-BI-053843

PATIENT
  Age: 72 Year
  Sex: Male

DRUGS (35)
  1. PRADAXA [Suspect]
     Active Substance: DABIGATRAN ETEXILATE MESYLATE
     Indication: Product used for unknown indication
     Dates: start: 201804, end: 201805
  2. PRADAXA [Suspect]
     Active Substance: DABIGATRAN ETEXILATE MESYLATE
     Dosage: 8 A.M. AND 8 P.M.
     Dates: start: 201805, end: 201906
  3. PRADAXA [Suspect]
     Active Substance: DABIGATRAN ETEXILATE MESYLATE
     Dosage: 1 CP (AS REPORTED) 8 A.M. AND 8 P.M.
     Dates: start: 201906, end: 202007
  4. PRADAXA [Suspect]
     Active Substance: DABIGATRAN ETEXILATE MESYLATE
     Dosage: 8 A.M. AND 8 P.M.
     Dates: start: 202007, end: 202101
  5. PRADAXA [Suspect]
     Active Substance: DABIGATRAN ETEXILATE MESYLATE
     Dosage: 1 CP (AS REPORTED) 8 A.M. AND 8 P.M.
     Dates: start: 202101, end: 20220413
  6. PRADAXA [Suspect]
     Active Substance: DABIGATRAN ETEXILATE MESYLATE
     Dosage: 8 A.M. AND 8 P.M.
     Dates: start: 202205
  7. EMPAGLIFLOZIN [Suspect]
     Active Substance: EMPAGLIFLOZIN
     Indication: Product used for unknown indication
     Dosage: 1 CP ( AS REPORTED)
     Dates: start: 20220130, end: 20220413
  8. EMPAGLIFLOZIN [Suspect]
     Active Substance: EMPAGLIFLOZIN
     Dosage: 1 CP ( AS REPORTED) AT 10
     Dates: start: 202205
  9. BISOPROLOL FUMARATE [Concomitant]
     Active Substance: BISOPROLOL FUMARATE
     Indication: Product used for unknown indication
     Dosage: 1 CP (AS REPORTED) AT 8 A.M.
     Dates: start: 201805
  10. BISOPROLOL FUMARATE [Concomitant]
     Active Substance: BISOPROLOL FUMARATE
     Dosage: 1.25 1 CP AT 8 X 2 (AS RPEORTED)
     Dates: start: 201906
  11. BISOPROLOL FUMARATE [Concomitant]
     Active Substance: BISOPROLOL FUMARATE
     Dosage: 3.75 1 CP (AS REPORTED) AT 8AM
     Dates: start: 202101
  12. RAMIPRIL [Concomitant]
     Active Substance: RAMIPRIL
     Indication: Product used for unknown indication
     Dosage: 2.5 1 CP (AS REPORTED) AT 4 P.M.
     Dates: start: 201805
  13. FUROSEMIDE [Concomitant]
     Active Substance: FUROSEMIDE
     Indication: Product used for unknown indication
     Dosage: 1 CP (AS REPORTED) AT 8 AM AND 4 PM
     Dates: start: 201805, end: 201903
  14. FUROSEMIDE [Concomitant]
     Active Substance: FUROSEMIDE
     Dosage: 25 MG 2 CP (S REPORTED) AT 8 AM, 1 CP (AS RPEORTD) AT 4 PM
     Dates: start: 201903, end: 201906
  15. FUROSEMIDE [Concomitant]
     Active Substance: FUROSEMIDE
     Dosage: 25 MG 2 CP (S REPORTED) AT 8 AM, 2 CP (AS RPEORTD) AT 4 PM
     Dates: start: 201906, end: 202007
  16. FUROSEMIDE [Concomitant]
     Active Substance: FUROSEMIDE
     Dosage: 1 CP (AS REPORTED) AT 8 AM AND 4 PM
     Dates: start: 202007
  17. FUROSEMIDE [Concomitant]
     Active Substance: FUROSEMIDE
     Dosage: 2 CP (AS REPORTED) AT 8 AM AND 4 PM
     Dates: start: 202101
  18. FUROSEMIDE [Concomitant]
     Active Substance: FUROSEMIDE
     Dosage: 500 HALF CP (AS REPORTED) AT 8 AM, FUROSEMIDE 25 MG 3 CP ( AS RPEORTED) AT 4 PM
     Dates: start: 20220422
  19. FUROSEMIDE [Concomitant]
     Active Substance: FUROSEMIDE
     Dosage: 2 CP (AS REPORTED) AT 8 AM AND 4 PM
     Dates: start: 202401
  20. Potassium Canreonate [Concomitant]
     Indication: Product used for unknown indication
     Dosage: 1 CP (AS REPORTED) AT 4 PM
     Dates: start: 201805, end: 20220413
  21. ATORVASTATIN [Concomitant]
     Active Substance: ATORVASTATIN
     Indication: Product used for unknown indication
     Dosage: 1 CP (AS REPORTED) AFTER DINNER
     Dates: start: 201805
  22. ALLOPURINOL [Concomitant]
     Active Substance: ALLOPURINOL
     Indication: Product used for unknown indication
     Dosage: 300 HALF  CP (AS REPORTED) AT 4 PM
     Dates: start: 201906
  23. EZETIMIBE [Concomitant]
     Active Substance: EZETIMIBE
     Indication: Product used for unknown indication
     Dosage: 1 CP (AS REPORTED) AFTER DINNER
     Dates: start: 201906
  24. LEVOTHYROXINE SODIUM [Concomitant]
     Active Substance: LEVOTHYROXINE SODIUM
     Indication: Product used for unknown indication
     Dosage: 75 MCG (AS REPORTED)
     Dates: start: 20191223
  25. PANTOPRAZOLE SODIUM [Concomitant]
     Active Substance: PANTOPRAZOLE SODIUM
     Indication: Product used for unknown indication
     Dosage: 1 CP (AS REPORTED)
  26. PANTOPRAZOLE SODIUM [Concomitant]
     Active Substance: PANTOPRAZOLE SODIUM
     Dosage: 20 ?1 CP (AS REPORTED)
     Dates: start: 20220422
  27. PANTOPRAZOLE SODIUM [Concomitant]
     Active Substance: PANTOPRAZOLE SODIUM
     Dosage: 1 CP (AS REPORTED)
     Dates: start: 202205
  28. SACUBITRIL\VALSARTAN [Concomitant]
     Active Substance: SACUBITRIL\VALSARTAN
     Indication: Product used for unknown indication
     Dosage: 49/51 MG 1 CP X 2(AS REPORTED)
     Dates: start: 202101, end: 20220413
  29. SACUBITRIL\VALSARTAN [Concomitant]
     Active Substance: SACUBITRIL\VALSARTAN
     Dosage: 49/51 MG 1 CP X 2 (AS REPORTED)
     Dates: start: 202205
  30. ENOXAPARIN [Concomitant]
     Active Substance: ENOXAPARIN
     Indication: Product used for unknown indication
     Dosage: 4000 1 VIAL SUBCUTANEOUS
     Route: 058
     Dates: start: 20220422
  31. ENOXAPARIN [Concomitant]
     Active Substance: ENOXAPARIN
     Dosage: 4000 1 FL S.C. (AS REPORTED)
     Dates: start: 20240422
  32. FERRIC CARBOXYMALTOSE [Concomitant]
     Active Substance: FERRIC CARBOXYMALTOSE
     Indication: Anaemia
  33. BISOPROLOL [Concomitant]
     Active Substance: BISOPROLOL\BISOPROLOL FUMARATE
     Indication: Product used for unknown indication
     Dosage: 1 CP (AS REPORTED) AT 8 AM
     Dates: start: 20220422
  34. ASCORBIC ACID\FERRIC PYROPHOSPHATE [Concomitant]
     Active Substance: ASCORBIC ACID\FERRIC PYROPHOSPHATE
     Indication: Product used for unknown indication
     Dosage: 1 CP (AS RPEORTED)
  35. VERICIGUAT [Concomitant]
     Active Substance: VERICIGUAT
     Indication: Product used for unknown indication
     Dosage: 1 CP (AS REPORTER) AT 8AM
     Dates: start: 202401

REACTIONS (5)
  - Acute kidney injury [Unknown]
  - Cardiac failure [Unknown]
  - Dyspnoea [Recovering/Resolving]
  - Implantable defibrillator insertion [Unknown]
  - Gravitational oedema [Recovering/Resolving]

NARRATIVE: CASE EVENT DATE: 20201101
